FAERS Safety Report 4778145-6 (Version None)
Quarter: 2005Q3

REPORT INFORMATION
  Report Type: 
  Country: None (occurrence: None)
  Receive Date: 20050923
  Receipt Date: 20050923
  Transmission Date: 20060218
  Serious: Yes (Hospitalization)
  Sender: FDA-Public Use
  Company Number: None

PATIENT
  Age: 62 Year
  Sex: Male
  Weight: 89.8122 kg

DRUGS (1)
  1. SILDENAFIL [Suspect]
     Indication: CARDIAC FAILURE CONGESTIVE
     Dosage: 25MG PO TID
     Route: 048
     Dates: start: 20050623

REACTIONS (1)
  - CARDIOMYOPATHY [None]
